FAERS Safety Report 18604554 (Version 1)
Quarter: 2020Q4

REPORT INFORMATION
  Report Type: Spontaneous
  Country: US (occurrence: US)
  Receive Date: 20201211
  Receipt Date: 20201211
  Transmission Date: 20210114
  Serious: Yes (Hospitalization)
  Sender: FDA-Public Use
  Company Number: US-GLENMARK PHARMACEUTICALS-2020GMK046041

PATIENT

DRUGS (2)
  1. RANITIDINE TABLETS USP, 300 MG [Suspect]
     Active Substance: RANITIDINE HYDROCHLORIDE
     Indication: GASTRIC DISORDER
     Dosage: 300 MG, BID (1 TABLET EVERY 12 HOURS)
     Route: 048
     Dates: start: 201908, end: 2019
  2. RANITIDINE TABLETS USP, 300 MG [Suspect]
     Active Substance: RANITIDINE HYDROCHLORIDE
     Dosage: 300 MG, BID (1 TABLET EVERY 12 HOURS)
     Route: 048
     Dates: start: 201911, end: 20200114

REACTIONS (2)
  - Abdominal pain upper [Recovered/Resolved]
  - Recalled product administered [Unknown]

NARRATIVE: CASE EVENT DATE: 201908
